FAERS Safety Report 14872641 (Version 1)
Quarter: 2018Q2

REPORT INFORMATION
  Report Type: Spontaneous
  Country: US (occurrence: US)
  Receive Date: 20180510
  Receipt Date: 20180510
  Transmission Date: 20180711
  Serious: Yes (Life-Threatening, Hospitalization, Other)
  Sender: FDA-Public Use
  Company Number: US-DENTSPLY-2018SCDP000077

PATIENT

DRUGS (1)
  1. LIDOCAINE HCL [Suspect]
     Active Substance: LIDOCAINE HYDROCHLORIDE
     Indication: DENTAL CARE
     Dosage: UNK
     Route: 004

REACTIONS (9)
  - Anaphylactic reaction [Unknown]
  - Urticaria pigmentosa [Unknown]
  - Circulatory collapse [Unknown]
  - Nausea [Unknown]
  - Systemic mastocytosis [Unknown]
  - Unresponsive to stimuli [Unknown]
  - Brain injury [Unknown]
  - Cardio-respiratory arrest [Unknown]
  - Pulseless electrical activity [Unknown]
